FAERS Safety Report 6270552-8 (Version None)
Quarter: 2009Q3

REPORT INFORMATION
  Report Type: 
  Country: None (occurrence: None)
  Receive Date: 20090716
  Receipt Date: 20090713
  Transmission Date: 20100115
  Serious: Yes (Other)
  Sender: FDA-Public Use
  Company Number: JP-PFIZER INC-2009232499

PATIENT
  Age: 29 Year

DRUGS (9)
  1. ZITHROMAX [Suspect]
     Indication: DERMATITIS ATOPIC
     Dosage: UNK
     Route: 048
     Dates: start: 20090123, end: 20090125
  2. ZITHROMAX [Suspect]
     Indication: ACNE
  3. DALACIN TOPICO [Concomitant]
  4. DIFFERIN [Concomitant]
  5. PANTOSIN [Concomitant]
  6. ALLELOCK [Concomitant]
  7. CLARITIN [Concomitant]
  8. ALLEGRA [Concomitant]
  9. ALL OTHER THERAPEUTIC PRODUCTS [Concomitant]

REACTIONS (1)
  - RHABDOMYOLYSIS [None]
